FAERS Safety Report 19580664 (Version 2)
Quarter: 2022Q3

REPORT INFORMATION
  Report Type: Spontaneous
  Country: US (occurrence: US)
  Receive Date: 20210720
  Receipt Date: 20220909
  Transmission Date: 20221027
  Serious: Yes (Other)
  Sender: FDA-Public Use
  Company Number: US-SA-2021SA237827

PATIENT
  Age: 77 Year
  Sex: Female

DRUGS (1)
  1. ZANTAC [Suspect]
     Active Substance: RANITIDINE HYDROCHLORIDE
     Indication: Gastrooesophageal reflux disease
     Dosage: 150 MG, OTHER
     Dates: start: 200504, end: 202004

REACTIONS (1)
  - Pancreatic carcinoma stage I [Unknown]

NARRATIVE: CASE EVENT DATE: 20200501
